FAERS Safety Report 11889772 (Version 1)
Quarter: 2016Q1

REPORT INFORMATION
  Report Type: Spontaneous
  Country: US (occurrence: US)
  Receive Date: 20160105
  Receipt Date: 20160105
  Transmission Date: 20160526
  Serious: No
  Sender: FDA-Public Use
  Company Number: US-009507513-1512USA014618

PATIENT
  Age: 16 Year
  Sex: Female
  Weight: 104 kg

DRUGS (1)
  1. NEXPLANON [Suspect]
     Active Substance: ETONOGESTREL
     Indication: CONTRACEPTION
     Dosage: 1 ROD FOR 3 YEARS
     Route: 059
     Dates: start: 20140914

REACTIONS (6)
  - Fatigue [Unknown]
  - Amenorrhoea [Unknown]
  - Pregnancy with implant contraceptive [Unknown]
  - Increased appetite [Unknown]
  - Unintended pregnancy [Unknown]
  - Abdominal pain upper [Unknown]

NARRATIVE: CASE EVENT DATE: 201412
